FAERS Safety Report 5622417-X (Version None)
Quarter: 2008Q1

REPORT INFORMATION
  Report Type: 
  Country: None (occurrence: None)
  Receive Date: 20080114
  Receipt Date: 20070810
  Transmission Date: 20080703
  Serious: Yes (Hospitalization)
  Sender: FDA-Public Use
  Company Number: A03200705073

PATIENT
  Age: 66 Year
  Sex: Female
  Weight: 35.83 kg

DRUGS (11)
  1. PLAVIX [Suspect]
     Indication: TRANSIENT ISCHAEMIC ATTACK
     Dosage: 75 MG QD - ORAL
     Route: 048
     Dates: start: 20070101
  2. PANTOPRAZOLE SODIUM [Concomitant]
  3. METOPROLOL SUCCINATE [Concomitant]
  4. SERTRALINE HYDROCHLORIDE [Concomitant]
  5. RISPERIDONE [Concomitant]
  6. DIAZEPAM [Concomitant]
  7. VITAMINS [Concomitant]
  8. FISH OIL [Concomitant]
  9. FLAXSEED OIL [Concomitant]
  10. PARACETAMOL [Concomitant]
  11. ACETYLSALICYLIC ACID SRT [Concomitant]

REACTIONS (7)
  - ANGINA PECTORIS [None]
  - BLOOD POTASSIUM DECREASED [None]
  - CORONARY ARTERY OCCLUSION [None]
  - FATIGUE [None]
  - INCREASED TENDENCY TO BRUISE [None]
  - MALAISE [None]
  - WEIGHT DECREASED [None]
